FAERS Safety Report 16208570 (Version 3)
Quarter: 2020Q2

REPORT INFORMATION
  Report Type: Spontaneous
  Country: FR (occurrence: FR)
  Receive Date: 20190417
  Receipt Date: 20200428
  Transmission Date: 20200713
  Serious: Yes (Hospitalization, Other)
  Sender: FDA-Public Use
  Company Number: FR-SA-2019SA101313

PATIENT
  Age: 45 Year
  Sex: Female
  Weight: 75.3 kg

DRUGS (6)
  1. RANITIDINE HYDROCHLORIDE. [Suspect]
     Active Substance: RANITIDINE HYDROCHLORIDE
     Indication: PREMEDICATION
     Dosage: 150 MG, QW
     Route: 048
     Dates: start: 20181116, end: 20190222
  2. TRASTUZUMAB. [Suspect]
     Active Substance: TRASTUZUMAB
     Indication: BREAST CANCER FEMALE
     Dosage: UNK UNK, QW
     Route: 041
     Dates: start: 20181130
  3. METHYLPREDNISOLONE SODIUM SUCCINATE. [Suspect]
     Active Substance: METHYLPREDNISOLONE SODIUM SUCCINATE
     Indication: PROPHYLAXIS OF NAUSEA AND VOMITING
     Dosage: 2 DF, QW
     Route: 048
     Dates: start: 20181116, end: 20190222
  4. CAPECITABINE. [Suspect]
     Active Substance: CAPECITABINE
     Indication: BREAST CANCER FEMALE
     Dosage: UNK UNK, UNK
     Route: 048
     Dates: start: 20181130, end: 20190222
  5. PACLITAXEL. [Suspect]
     Active Substance: PACLITAXEL
     Indication: BREAST CANCER FEMALE
     Dosage: 144 MG, QW
     Route: 041
     Dates: start: 20181130, end: 20190222
  6. LEVOCETIRIZINE [Suspect]
     Active Substance: LEVOCETIRIZINE
     Indication: PREMEDICATION
     Dosage: 5 MG, QW
     Route: 048
     Dates: start: 20181116, end: 20190222

REACTIONS (2)
  - Type 2 diabetes mellitus [Recovered/Resolved with Sequelae]
  - Off label use [Unknown]

NARRATIVE: CASE EVENT DATE: 201903
